FAERS Safety Report 8811519 (Version 2)
Quarter: 2013Q1

REPORT INFORMATION
  Report Type: Report from Study
  Country: JP (occurrence: JP)
  Receive Date: 20120927
  Receipt Date: 20130130
  Transmission Date: 20140127
  Serious: Yes (Other)
  Sender: FDA-Public Use
  Company Number: JP-VERTEX PHARMACEUTICAL INC.-2012-021640

PATIENT
  Age: 74 Year
  Sex: Male

DRUGS (10)
  1. VX-950 (TELAPREVIR) [Suspect]
     Indication: CHRONIC HEPATITIS C
     Dosage: 2250 MG, QD
     Route: 048
     Dates: start: 20120713, end: 20120717
  2. RIBAVIRIN [Concomitant]
     Dosage: 800 MG, QD
     Route: 048
     Dates: start: 20120713, end: 20120717
  3. PEGINTERFERON ALFA-2B [Concomitant]
     Dosage: 1.5 ?G/KG, UNK
     Route: 058
  4. PEGINTERFERON ALFA-2B [Concomitant]
     Dosage: 1.6 ?G/KG, ONCE EVERY 2 WEEKS
     Route: 058
     Dates: start: 20120905, end: 20121003
  5. PEGINTERFERON ALFA-2B [Concomitant]
     Dosage: 2.5 ?G/KG, ONCE EVERY 2 WEEKS
     Route: 058
     Dates: start: 20121017, end: 20121031
  6. NORVASC [Concomitant]
     Dosage: 5 MG, QD
     Route: 048
  7. TAGAMET                            /00397401/ [Concomitant]
     Dosage: 600 MG, QD
     Route: 048
     Dates: end: 20120716
  8. URSO                               /00465701/ [Concomitant]
     Dosage: 900 MG, QD
     Route: 048
     Dates: start: 20120801, end: 20120822
  9. URSO                               /00465701/ [Concomitant]
     Dosage: 900 MG, QD
     Route: 048
     Dates: start: 20120905
  10. ZYLORIC [Concomitant]
     Dosage: 200 MG, QD
     Route: 048
     Dates: end: 20120717

REACTIONS (2)
  - Blood creatinine increased [Recovered/Resolved]
  - Hepatocellular carcinoma [Not Recovered/Not Resolved]
